FAERS Safety Report 8076227-7 (Version None)
Quarter: 2012Q1

REPORT INFORMATION
  Report Type: 
  Country: None (occurrence: None)
  Receive Date: 20120127
  Receipt Date: 20120123
  Transmission Date: 20120608
  Serious: Yes (Other)
  Sender: FDA-Public Use
  Company Number: GB-PFIZER INC-2012018842

PATIENT
  Age: 70 Year
  Sex: Male

DRUGS (1)
  1. CARDURA [Suspect]
     Indication: BLOOD PRESSURE INCREASED
     Dosage: 2 MG, 1X/DAY IN THE MORNING

REACTIONS (7)
  - DIZZINESS [None]
  - TREMOR [None]
  - NAUSEA [None]
  - LOSS OF CONSCIOUSNESS [None]
  - CHEST DISCOMFORT [None]
  - MALAISE [None]
  - FEELING ABNORMAL [None]
